FAERS Safety Report 7436944-6 (Version None)
Quarter: 2011Q2

REPORT INFORMATION
  Report Type: 
  Country: None (occurrence: None)
  Receive Date: 20110426
  Receipt Date: 20110421
  Transmission Date: 20111010
  Serious: No
  Sender: FDA-Public Use
  Company Number: US-PFIZER INC-2011087721

PATIENT
  Sex: Male

DRUGS (3)
  1. DILANTIN [Suspect]
     Dosage: 6 CAPSULES DAILY
  2. DILANTIN [Suspect]
     Dosage: 100 MG, 6 CAPSULES DAILY
  3. PHENYTOIN [Suspect]
     Dosage: UNK

REACTIONS (2)
  - HEADACHE [None]
  - STRESS [None]
